FAERS Safety Report 9745775 (Version 1)
Quarter: 2013Q4

REPORT INFORMATION
  Report Type: Report from Study
  Country: US (occurrence: US)
  Receive Date: 20131211
  Receipt Date: 20131211
  Transmission Date: 20140711
  Serious: No
  Sender: FDA-Public Use
  Company Number: US-009507513-1312USA002207

PATIENT
  Age: 48 Year
  Sex: Female
  Weight: 69.5 kg

DRUGS (11)
  1. BLINDED ASENAPINE MALEATE-BIPOLAR DISORDER [Suspect]
     Indication: BIPOLAR I DISORDER
     Dosage: UNK
     Dates: start: 20131001
  2. DEPAKOTE [Concomitant]
     Indication: BIPOLAR I DISORDER
     Dosage: 500 MG, QD
     Route: 048
     Dates: start: 201012, end: 20130924
  3. LISINOPRIL [Concomitant]
     Indication: HYPERTENSION
     Dosage: 5 MG, QD
     Route: 048
     Dates: start: 201112
  4. OXYBUTYNIN [Concomitant]
     Indication: POLLAKIURIA
     Dosage: 5 MG, TID
     Route: 048
     Dates: start: 201111
  5. PREDNISONE [Concomitant]
     Indication: CATARACT OPERATION
     Dosage: 1 DROP, PRN
     Route: 031
     Dates: start: 201307
  6. VITAMIN B COMPLEX [Concomitant]
     Indication: ROUTINE HEALTH MAINTENANCE
     Dosage: 1 DF, QD
     Route: 048
     Dates: start: 1990
  7. LORAZEPAM [Concomitant]
     Indication: INSOMNIA
     Dosage: 1 MG, PRN
     Route: 048
     Dates: start: 20130924, end: 20131003
  8. OMEPRAZOLE [Concomitant]
     Indication: GASTROOESOPHAGEAL REFLUX DISEASE
     Dosage: 40 MG, QD
     Route: 048
     Dates: start: 201212
  9. DIPHENHYDRAMINE HYDROCHLORIDE [Concomitant]
     Indication: ARTHROPOD BITE
     Dosage: 1 DF, QD
     Route: 048
     Dates: start: 2010, end: 20130924
  10. CLEAR EYES COMPLETE [Concomitant]
     Indication: DRY EYE
     Dosage: 1 DROP, PRN
     Route: 031
     Dates: start: 2008
  11. IBUPROFEN [Concomitant]
     Indication: ARTHRITIS
     Dosage: 400 MG, PRN
     Route: 048
     Dates: start: 2009

REACTIONS (2)
  - Pruritus [Recovered/Resolved]
  - Pruritus [Recovered/Resolved]
